FAERS Safety Report 23987478 (Version 1)
Quarter: 2024Q2

REPORT INFORMATION
  Report Type: Other
  Country: BR (occurrence: BR)
  Receive Date: 20240618
  Receipt Date: 20240618
  Transmission Date: 20240716
  Serious: No
  Sender: FDA-Public Use
  Company Number: BR-TOLMAR, INC.-24BR049878

PATIENT
  Age: 7 Year
  Sex: Female

DRUGS (2)
  1. ELIGARD [Suspect]
     Active Substance: LEUPROLIDE ACETATE
     Indication: Precocious puberty
     Dosage: 45 MILLIGRAM
     Route: 058
     Dates: start: 20231208
  2. ELIGARD [Suspect]
     Active Substance: LEUPROLIDE ACETATE
     Indication: Precocious puberty
     Dosage: UNK

REACTIONS (5)
  - Limb discomfort [Recovered/Resolved]
  - Tearfulness [Recovered/Resolved]
  - Injection site scar [Not Recovered/Not Resolved]
  - Headache [Recovered/Resolved]
  - Injection site pain [Recovered/Resolved]

NARRATIVE: CASE EVENT DATE: 20231208
